FAERS Safety Report 8759470 (Version 3)
Quarter: 2013Q4

REPORT INFORMATION
  Report Type: Spontaneous
  Country: US (occurrence: US)
  Receive Date: 20120829
  Receipt Date: 20131101
  Transmission Date: 20140711
  Serious: Yes (Hospitalization)
  Sender: FDA-Public Use
  Company Number: US-MERCK SHARP + DOHME D.O.O.-1206USA04911

PATIENT
  Age: 45 Year
  Sex: Female

DRUGS (6)
  1. PRINIVIL [Suspect]
     Indication: HYPERTENSION
     Dosage: 40 MG, QD
     Route: 048
  2. AMLODIPINE [Concomitant]
     Dosage: 10 MG, QD
  3. METOPROLOL [Concomitant]
     Dosage: 50 MG, BID
  4. MINOXIDIL [Concomitant]
     Dosage: 2.5 MG, QD
  5. ALISKIREN [Concomitant]
     Dosage: 150 MG, QD
  6. HYDRALAZINE [Concomitant]
     Dosage: 10 MG, Q6H
     Route: 042

REACTIONS (1)
  - Drug ineffective [Unknown]
